FAERS Safety Report 6290663 (Version 16)
Quarter: 2013Q2

REPORT INFORMATION
  Report Type: Spontaneous
  Country: US (occurrence: US)
  Receive Date: 20070418
  Receipt Date: 20130617
  Transmission Date: 20140414
  Serious: Yes (Hospitalization, Other)
  Sender: FDA-Public Use
  Company Number: PHEH2007US04858

PATIENT
  Sex: Female

DRUGS (17)
  1. AREDIA [Suspect]
     Indication: BONE LOSS
     Dosage: 90 MG, QMO
     Route: 042
  2. AREDIA [Suspect]
     Indication: OSTEOPOROSIS
  3. ZOMETA [Suspect]
     Indication: BONE LOSS
     Dosage: 4 MG, QMO
     Route: 042
  4. ZOMETA [Suspect]
     Indication: OSTEOPOROSIS
  5. CHEMOTHERAPEUTICS NOS [Concomitant]
  6. LEVOXYL [Concomitant]
  7. DILTIAZEM [Concomitant]
  8. TRIMETHOPRIM [Concomitant]
  9. DILAUDID [Concomitant]
     Route: 048
     Dates: start: 20060516
  10. MOSCONTIN [Concomitant]
     Dosage: 1 DF, BID
     Route: 048
     Dates: start: 20060807
  11. FOSAMAX [Concomitant]
     Dates: start: 20051121
  12. HEPARIN [Concomitant]
     Route: 042
  13. TRIAMTERENE [Concomitant]
  14. HYDROCHLOROTHIAZIDE [Concomitant]
  15. CARDIZEM [Concomitant]
  16. ANZEMET [Concomitant]
  17. ATIVAN [Concomitant]

REACTIONS (74)
  - Osteonecrosis of jaw [Unknown]
  - Pain [Unknown]
  - Generalised anxiety disorder [Unknown]
  - Osteomyelitis [Unknown]
  - Periodontitis [Unknown]
  - Bone disorder [Unknown]
  - Primary sequestrum [Unknown]
  - Swelling [Unknown]
  - Lymphadenopathy [Recovered/Resolved]
  - Intervertebral disc degeneration [Unknown]
  - Haemangioma of bone [Unknown]
  - Cholelithiasis [Unknown]
  - Metastases to bone [Unknown]
  - Marrow hyperplasia [Unknown]
  - Hepatic lesion [Unknown]
  - Metastases to spine [Unknown]
  - Hepatic cyst [Unknown]
  - Splenic cyst [Unknown]
  - Hiatus hernia [Unknown]
  - Infection [Unknown]
  - Oral disorder [Unknown]
  - Soft tissue disorder [Unknown]
  - Jaw disorder [Unknown]
  - Skin induration [Unknown]
  - Osteolysis [Unknown]
  - Osteoarthritis [Unknown]
  - Osteosclerosis [Unknown]
  - Intervertebral disc disorder [Unknown]
  - Plasma cell myeloma [Unknown]
  - Obstructive airways disorder [Unknown]
  - Spirometry abnormal [Unknown]
  - Submandibular mass [Unknown]
  - Excessive granulation tissue [Unknown]
  - Abscess [Unknown]
  - Type 2 diabetes mellitus [Unknown]
  - Depression [Unknown]
  - Dysfunctional uterine bleeding [Unknown]
  - Cerebrovascular accident [Unknown]
  - Aphasia [Unknown]
  - Bronchitis [Unknown]
  - Cough [Unknown]
  - Convulsion [Unknown]
  - Tendon rupture [Unknown]
  - Musculoskeletal chest pain [Unknown]
  - Back pain [Unknown]
  - Tenderness [Unknown]
  - Fatigue [Unknown]
  - Dyspnoea exertional [Unknown]
  - Nausea [Unknown]
  - Vomiting [Unknown]
  - Heart rate increased [Unknown]
  - Haemoglobin decreased [Unknown]
  - Haematocrit decreased [Unknown]
  - Monocyte count increased [Unknown]
  - Electrocardiogram abnormal [Unknown]
  - Carotid artery disease [Unknown]
  - Fungal infection [Unknown]
  - Electrocardiogram ST-T segment abnormal [Unknown]
  - Arthralgia [Unknown]
  - Osteopenia [Unknown]
  - Sialoadenitis [Recovered/Resolved]
  - Breast mass [Unknown]
  - Breast cyst [Unknown]
  - Blood cholesterol increased [Unknown]
  - Insomnia [Unknown]
  - Muscle spasms [Unknown]
  - Rib fracture [Unknown]
  - Arthropathy [Unknown]
  - Chondropathy [Unknown]
  - Dental discomfort [Unknown]
  - Pulmonary mass [Unknown]
  - Splenic lesion [Unknown]
  - Intervertebral disc compression [Unknown]
  - Spinal deformity [Unknown]
